FAERS Safety Report 7222903-5 (Version None)
Quarter: 2011Q1

REPORT INFORMATION
  Report Type: 
  Country: None (occurrence: None)
  Receive Date: 20110112
  Receipt Date: 20110103
  Transmission Date: 20110831
  Serious: Yes (Other)
  Sender: FDA-Public Use
  Company Number: CA-ASTRAZENECA-2011SE00327

PATIENT
  Age: 19 Year
  Sex: Male

DRUGS (3)
  1. SEROQUEL [Suspect]
     Indication: MOOD SWINGS
     Route: 048
  2. SEROQUEL [Suspect]
     Indication: BIPOLAR DISORDER
     Route: 048
  3. SEROQUEL [Suspect]
     Indication: SCHIZOPHRENIA
     Route: 048

REACTIONS (6)
  - SUICIDAL BEHAVIOUR [None]
  - SEXUAL ABUSE [None]
  - DRUG DOSE OMISSION [None]
  - AGGRESSION [None]
  - DRUG ABUSE [None]
  - ALCOHOL ABUSE [None]
